FAERS Safety Report 19362320 (Version 1)
Quarter: 2021Q2

REPORT INFORMATION
  Report Type: Spontaneous
  Country: US (occurrence: US)
  Receive Date: 20210601
  Receipt Date: 20210601
  Transmission Date: 20210717
  Serious: Yes (Other)
  Sender: FDA-Public Use
  Company Number: US-AMERICAN REGENT INC-2021001396

PATIENT
  Age: 40 Year
  Sex: Female

DRUGS (1)
  1. FUROSEMIDE INJECTION, USP (5702?25) [Suspect]
     Active Substance: FUROSEMIDE
     Indication: ACUTE LEFT VENTRICULAR FAILURE
     Dosage: UNK
     Route: 065

REACTIONS (2)
  - Encephalopathy [Recovered/Resolved]
  - Product use in unapproved indication [Unknown]
